FAERS Safety Report 5224533-3 (Version None)
Quarter: 2007Q1

REPORT INFORMATION
  Report Type: 
  Country: None (occurrence: None)
  Receive Date: 20070126
  Receipt Date: 20070117
  Transmission Date: 20070707
  Serious: Yes (Hospitalization, Other)
  Sender: FDA-Public Use
  Company Number: 2006SP004390

PATIENT
  Age: 41 Year
  Sex: Female
  Weight: 53.5244 kg

DRUGS (6)
  1. PEG-INTRON [Suspect]
     Indication: HEPATITIS C
     Dosage: 80 MCG; SC; SEE IMAGE
     Route: 058
     Dates: start: 20060713
  2. PEG-INTRON [Suspect]
     Indication: HEPATITIS C
     Dosage: 80 MCG; SC; SEE IMAGE
     Route: 058
     Dates: start: 20061101
  3. REBETOL [Suspect]
     Indication: HEPATITIS C
     Dosage: PO; SEE IMAGE
     Route: 048
     Dates: start: 20060713, end: 20061001
  4. REBETOL [Suspect]
     Indication: HEPATITIS C
     Dosage: PO; SEE IMAGE
     Route: 048
     Dates: start: 20061101
  5. SPIRIVA [Concomitant]
  6. VICOPROFEN [Concomitant]

REACTIONS (22)
  - BACK PAIN [None]
  - BLOOD ALBUMIN ABNORMAL [None]
  - BLOOD POTASSIUM DECREASED [None]
  - BLOOD PRESSURE DECREASED [None]
  - CONDITION AGGRAVATED [None]
  - CONTUSION [None]
  - DEHYDRATION [None]
  - DRUG INEFFECTIVE [None]
  - HAEMOGLOBIN INCREASED [None]
  - INTERVERTEBRAL DISC PROTRUSION [None]
  - LEUKOPENIA [None]
  - NAUSEA [None]
  - PAIN [None]
  - PANCREATIC ENLARGEMENT [None]
  - RED BLOOD CELL COUNT DECREASED [None]
  - SPLENOMEGALY [None]
  - SYSTEMIC LUPUS ERYTHEMATOSUS [None]
  - THROMBOCYTOPENIA [None]
  - VIRAL INFECTION [None]
  - VOMITING [None]
  - WEIGHT FLUCTUATION [None]
  - WHITE BLOOD CELL COUNT INCREASED [None]
